APPROVED DRUG PRODUCT: FIORICET W/ CODEINE
Active Ingredient: ACETAMINOPHEN; BUTALBITAL; CAFFEINE; CODEINE PHOSPHATE
Strength: 325MG;50MG;40MG;30MG
Dosage Form/Route: CAPSULE;ORAL
Application: N020232 | Product #001 | TE Code: AB
Applicant: ACTAVIS LABORATORIES UT INC
Approved: Jul 30, 1992 | RLD: Yes | RS: Yes | Type: RX